FAERS Safety Report 12110771 (Version 2)
Quarter: 2016Q3

REPORT INFORMATION
  Report Type: Spontaneous
  Country: JP (occurrence: JP)
  Receive Date: 20160224
  Receipt Date: 20160922
  Transmission Date: 20161109
  Serious: Yes (Death, Hospitalization, Other)
  Sender: FDA-Public Use
  Company Number: JP-ASTRAZENECA-2016SE18825

PATIENT
  Age: 838 Month
  Sex: Male
  Weight: 41 kg

DRUGS (37)
  1. NESP [Suspect]
     Active Substance: DARBEPOETIN ALFA
     Route: 042
     Dates: start: 20151110, end: 20151117
  2. MUCOSTA [Concomitant]
     Active Substance: REBAMIPIDE
     Indication: GASTRITIS
     Route: 048
     Dates: end: 20151114
  3. TRESIBA [Concomitant]
     Active Substance: INSULIN DEGLUDEC
     Indication: DIABETES MELLITUS
     Route: 058
     Dates: end: 20150622
  4. ONGLYZA [Suspect]
     Active Substance: SAXAGLIPTIN HYDROCHLORIDE
     Route: 048
     Dates: end: 20151114
  5. DEPAKENE [Suspect]
     Active Substance: VALPROIC ACID
     Indication: EPILEPSY
     Route: 048
     Dates: start: 20150710, end: 20150729
  6. NESP [Suspect]
     Active Substance: DARBEPOETIN ALFA
     Route: 042
     Dates: start: 20151013, end: 20151013
  7. NESP [Suspect]
     Active Substance: DARBEPOETIN ALFA
     Route: 042
     Dates: start: 20151020, end: 20151103
  8. NEXIUM [Concomitant]
     Active Substance: ESOMEPRAZOLE MAGNESIUM
     Indication: GASTROOESOPHAGEAL REFLUX DISEASE
     Route: 048
     Dates: end: 20151114
  9. DEPAKENE [Suspect]
     Active Substance: VALPROIC ACID
     Indication: EPILEPSY
     Route: 048
     Dates: start: 20150904, end: 20151022
  10. NESP [Suspect]
     Active Substance: DARBEPOETIN ALFA
     Route: 042
     Dates: start: 20150901, end: 20151005
  11. NAUZELIN [Concomitant]
     Active Substance: DOMPERIDONE
     Indication: VOMITING
     Route: 048
     Dates: start: 20150704, end: 20150802
  12. UNASYN [Concomitant]
     Active Substance: AMPICILLIN SODIUM\SULBACTAM SODIUM
     Indication: PNEUMONIA
     Route: 041
     Dates: start: 20150728, end: 20150803
  13. DEPAKENE [Suspect]
     Active Substance: VALPROIC ACID
     Indication: EPILEPSY
     Route: 048
     Dates: start: 20150804, end: 20150903
  14. NESP [Suspect]
     Active Substance: DARBEPOETIN ALFA
     Route: 042
     Dates: end: 20150714
  15. HERBAL NOS [Concomitant]
     Active Substance: HERBALS
     Indication: DECREASED APPETITE
     Route: 048
     Dates: start: 20150804, end: 20151028
  16. PURSENNID [Concomitant]
     Active Substance: SENNOSIDES A AND B
     Indication: CONSTIPATION
     Route: 048
     Dates: end: 20150704
  17. PLETAAL [Concomitant]
     Active Substance: CILOSTAZOL
     Indication: PERIPHERAL ARTERIAL OCCLUSIVE DISEASE
     Route: 048
     Dates: end: 20151020
  18. ADALAT CC [Concomitant]
     Active Substance: NIFEDIPINE
     Indication: PERIPHERAL ARTERIAL OCCLUSIVE DISEASE
     Route: 048
     Dates: end: 20151114
  19. ROCEPHINE [Concomitant]
     Active Substance: CEFTRIAXONE SODIUM
     Indication: PNEUMONIA
     Route: 041
     Dates: start: 20151114, end: 20151118
  20. SUBVITAN [Concomitant]
     Indication: HYPOPHAGIA
     Route: 042
     Dates: start: 20151114, end: 20151118
  21. GLUCOSE [Concomitant]
     Active Substance: DEXTROSE
     Indication: HYPOPHAGIA
     Route: 042
     Dates: start: 20151114, end: 20151118
  22. BIOFERMIN R [Concomitant]
     Active Substance: BACILLUS SUBTILIS\LACTOBACILLUS ACIDOPHILUS\STREPTOCOCCUS FAECAIS
     Indication: GASTROENTERITIS STAPHYLOCOCCAL
     Route: 048
     Dates: start: 20150711, end: 20151024
  23. AZILVA [Concomitant]
     Active Substance: AZILSARTAN KAMEDOXOMIL
     Indication: HYPERTENSION
     Route: 048
     Dates: end: 20151114
  24. ADALAT CC [Concomitant]
     Active Substance: NIFEDIPINE
     Indication: PERIPHERAL ARTERIAL OCCLUSIVE DISEASE
     Route: 048
     Dates: start: 20151111, end: 20151114
  25. NESP [Suspect]
     Active Substance: DARBEPOETIN ALFA
     Route: 042
     Dates: start: 20150804, end: 20150825
  26. BAYASPIRIN [Concomitant]
     Active Substance: ASPIRIN
     Indication: ANGINA PECTORIS
     Route: 048
     Dates: end: 20151114
  27. RIONA [Concomitant]
     Active Substance: FERRIC CITRATE ANHYDROUS
     Indication: HYPERPHOSPHATAEMIA
     Route: 048
     Dates: end: 20151020
  28. GLUFAST [Concomitant]
     Active Substance: MITIGLINIDE
     Indication: DIABETES MELLITUS
     Route: 048
     Dates: start: 20151101, end: 20151114
  29. GASTER [Concomitant]
     Active Substance: FAMOTIDINE
     Indication: HYPOPHAGIA
     Route: 042
     Dates: start: 20151114, end: 20151118
  30. NESP [Suspect]
     Active Substance: DARBEPOETIN ALFA
     Route: 042
     Dates: start: 20150721, end: 20150728
  31. VANCOMYCIN HYDROCHLORIDE. [Concomitant]
     Active Substance: VANCOMYCIN HYDROCHLORIDE
     Indication: GASTROENTERITIS STAPHYLOCOCCAL
     Route: 048
     Dates: start: 20150711, end: 20151024
  32. SEIBULE [Concomitant]
     Active Substance: MIGLITOL
     Indication: DIABETES MELLITUS
     Dosage: TID
     Route: 048
     Dates: start: 20151011, end: 20151114
  33. CERCINE [Concomitant]
     Active Substance: DIAZEPAM
     Indication: INSOMNIA
     Route: 048
     Dates: start: 20151102, end: 20151105
  34. HUMULIN 3/7 [Concomitant]
     Indication: DIABETES MELLITUS
     Route: 058
     Dates: start: 20150624, end: 20150715
  35. LACTULOSE. [Concomitant]
     Active Substance: LACTULOSE
     Indication: HYPERAMMONAEMIA
     Route: 048
     Dates: end: 20150704
  36. ALEVIATIN [Concomitant]
     Active Substance: PHENYTOIN SODIUM
     Indication: EPILEPSY
     Route: 048
     Dates: start: 20151102, end: 20151114
  37. VEEN-D [Concomitant]
     Active Substance: DEXTROSE
     Indication: HYPOPHAGIA
     Route: 041
     Dates: start: 20151114, end: 20151118

REACTIONS (6)
  - Platelet count decreased [Recovered/Resolved]
  - Neutrophil count decreased [Recovered/Resolved]
  - Red blood cell count decreased [Recovered/Resolved]
  - Decreased appetite [Not Recovered/Not Resolved]
  - Pneumonia [Fatal]
  - Somnolence [Unknown]

NARRATIVE: CASE EVENT DATE: 201507
